FAERS Safety Report 14346284 (Version 1)
Quarter: 2018Q1

REPORT INFORMATION
  Report Type: Spontaneous
  Country: IE (occurrence: IE)
  Receive Date: 20180103
  Receipt Date: 20180103
  Transmission Date: 20180509
  Serious: Yes (Hospitalization, Other)
  Sender: FDA-Public Use
  Company Number: IE-PFIZER INC-2017556389

PATIENT
  Age: 51 Year
  Sex: Male

DRUGS (6)
  1. RIVAROXABAN [Concomitant]
     Active Substance: RIVAROXABAN
     Dosage: UNK
     Dates: start: 20160918
  2. AMIODARONE HCL [Suspect]
     Active Substance: AMIODARONE HYDROCHLORIDE
     Indication: HEART RATE INCREASED
     Dosage: UNK
     Route: 065
     Dates: start: 2016
  3. HUMIRA [Suspect]
     Active Substance: ADALIMUMAB
     Dosage: 40 MG, (EVERY OTHER WEEK, 80 MILLIGRAMS EVERY 2 WEEKS)
     Route: 058
     Dates: start: 20160215
  4. HUMIRA [Suspect]
     Active Substance: ADALIMUMAB
     Indication: PSORIASIS
     Dosage: 40 MG, WEEKLY
     Route: 058
     Dates: start: 20160115, end: 20160115
  5. HUMIRA [Suspect]
     Active Substance: ADALIMUMAB
     Indication: PSORIASIS
     Dosage: 80 MG, UNK
     Route: 058
     Dates: start: 20160108, end: 20160108
  6. HUMIRA [Suspect]
     Active Substance: ADALIMUMAB
     Dosage: 40 MG, (EVERY OTHER WEEK, 40 MILLIGRAMS EVERY 2 WEEKS)
     Route: 058
     Dates: start: 201707

REACTIONS (20)
  - White blood cell count increased [Recovered/Resolved]
  - Postoperative wound complication [Recovered/Resolved]
  - Neutrophil count increased [Recovered/Resolved]
  - Peritonitis [Unknown]
  - Red blood cell count decreased [Unknown]
  - Purulence [Recovered/Resolved]
  - Bile duct stone [Recovered/Resolved]
  - Acute kidney injury [Recovered/Resolved]
  - Blood chloride decreased [Unknown]
  - Intestinal dilatation [Recovered/Resolved]
  - Large intestine erosion [Unknown]
  - Blood albumin decreased [Unknown]
  - Wound secretion [Recovered/Resolved]
  - Hepatic cirrhosis [Recovered/Resolved]
  - Biliary fistula [Recovered/Resolved]
  - Cholecystitis infective [Recovered/Resolved]
  - Enterococcal infection [Unknown]
  - Liver function test abnormal [Recovered/Resolved]
  - Ventricular tachycardia [Recovered/Resolved]
  - Hepatitis [Recovered/Resolved]

NARRATIVE: CASE EVENT DATE: 2016
